FAERS Safety Report 8985185 (Version 1)
Quarter: 2012Q4

REPORT INFORMATION
  Report Type: 
  Country: CH (occurrence: CH)
  Receive Date: 20121226
  Receipt Date: 20121226
  Transmission Date: 20130627
  Serious: Yes (Life-Threatening)
  Sender: FDA-Public Use
  Company Number: CH-ASTRAZENECA-2012SE94828

PATIENT
  Age: 78 Year
  Sex: Female

DRUGS (6)
  1. SEROQUEL [Suspect]
     Indication: ABNORMAL BEHAVIOUR
     Route: 048
     Dates: end: 20121115
  2. ABILIFY [Suspect]
     Route: 048
     Dates: start: 20121115
  3. XENAZINE [Suspect]
     Indication: HUNTINGTON^S DISEASE
     Route: 048
     Dates: start: 201206
  4. TOVIAZ [Suspect]
     Indication: MICTURITION DISORDER
     Route: 048
     Dates: end: 201211
  5. PANTOPRAZOLE [Concomitant]
  6. SELIPRAN [Concomitant]
     Route: 048

REACTIONS (1)
  - Electrocardiogram QT prolonged [Not Recovered/Not Resolved]
